FAERS Safety Report 23927112 (Version 1)
Quarter: 2024Q2

REPORT INFORMATION
  Report Type: Spontaneous
  Country: US (occurrence: US)
  Receive Date: 20240531
  Receipt Date: 20240531
  Transmission Date: 20240716
  Serious: No
  Sender: FDA-Public Use
  Company Number: US-RADIUS HEALTH INC.-2023US006556

PATIENT
  Age: 69 Year
  Sex: Female

DRUGS (3)
  1. TYMLOS [Suspect]
     Active Substance: ABALOPARATIDE
     Indication: Senile osteoporosis
     Dosage: 80 MCG, DAILY
     Route: 058
     Dates: start: 20231212
  2. TYMLOS [Suspect]
     Active Substance: ABALOPARATIDE
     Indication: Sarcoidosis
  3. TYMLOS [Suspect]
     Active Substance: ABALOPARATIDE
     Indication: Hypothyroidism

REACTIONS (4)
  - Joint stiffness [Unknown]
  - Musculoskeletal stiffness [Unknown]
  - Headache [Unknown]
  - Pain [Unknown]

NARRATIVE: CASE EVENT DATE: 20231201
